FAERS Safety Report 10867751 (Version 1)
Quarter: 2015Q1

REPORT INFORMATION
  Report Type: Spontaneous
  Country: US (occurrence: US)
  Receive Date: 20150225
  Receipt Date: 20150225
  Transmission Date: 20150721
  Serious: No
  Sender: FDA-Public Use
  Company Number: US-009507513-1502USA009739

PATIENT
  Age: 16 Year
  Sex: Female
  Weight: 93.88 kg

DRUGS (1)
  1. NEXPLANON [Suspect]
     Active Substance: ETONOGESTREL
     Indication: CONTRACEPTION
     Dosage: 68MG ROD/ONE ROD, INSERTED EVERY 3 YEARS; ^IMPLANT IN ARM^
     Route: 059
     Dates: start: 20140619

REACTIONS (1)
  - Unintended pregnancy [Unknown]
